FAERS Safety Report 7885092-X (Version None)
Quarter: 2011Q4

REPORT INFORMATION
  Report Type: 
  Country: None (occurrence: None)
  Receive Date: 20111102
  Receipt Date: 20100804
  Transmission Date: 20120403
  Serious: No
  Sender: FDA-Public Use
  Company Number: US-BAYER-201029855NA

PATIENT
  Age: 81 Year
  Sex: Female

DRUGS (1)
  1. AVELOX [Suspect]
     Indication: PNEUMONIA
     Dosage: 400 MG, QD
     Route: 048
     Dates: start: 20100623, end: 20100629

REACTIONS (7)
  - PAIN IN EXTREMITY [None]
  - NAUSEA [None]
  - TREMOR [None]
  - NERVOUSNESS [None]
  - PARAESTHESIA [None]
  - ABDOMINAL PAIN [None]
  - GLOSSODYNIA [None]
